FAERS Safety Report 6044457-1 (Version None)
Quarter: 2009Q1

REPORT INFORMATION
  Report Type: 
  Country: None (occurrence: None)
  Receive Date: 20090120
  Receipt Date: 20081210
  Transmission Date: 20090719
  Serious: Yes (Other)
  Sender: FDA-Public Use
  Company Number: BR-PFIZER INC-2008096453

PATIENT

DRUGS (1)
  1. ZYVOX [Suspect]

REACTIONS (5)
  - DELIRIUM [None]
  - DEMENTIA ALZHEIMER'S TYPE [None]
  - ENTEROCOCCAL INFECTION [None]
  - ESCHAR [None]
  - MEMORY IMPAIRMENT [None]
